FAERS Safety Report 21734506 (Version 9)
Quarter: 2024Q4

REPORT INFORMATION
  Report Type: Spontaneous
  Country: US (occurrence: US)
  Receive Date: 20221215
  Receipt Date: 20241211
  Transmission Date: 20250114
  Serious: No
  Sender: PFIZER
  Company Number: US-PFIZER INC-PV202200123108

PATIENT
  Age: 78 Year
  Sex: Female

DRUGS (1)
  1. IBRANCE [Suspect]
     Active Substance: PALBOCICLIB
     Indication: Breast cancer female
     Dosage: 100 MG, CYCLIC (TAKE 1 TABLET BY MOUTH DAILY 21 DAYS ON. 7 DAYS OFF. 28 DAY CYCLE TOTAL)

REACTIONS (7)
  - Gait disturbance [Unknown]
  - Paranoia [Not Recovered/Not Resolved]
  - Asthenia [Unknown]
  - Herpes zoster [Unknown]
  - Nausea [Unknown]
  - Therapeutic response unexpected [Unknown]
  - White blood cell count abnormal [Unknown]

NARRATIVE: CASE EVENT DATE: 20230512
